FAERS Safety Report 15904787 (Version 1)
Quarter: 2019Q1

REPORT INFORMATION
  Report Type: Spontaneous
  Country: GB (occurrence: GB)
  Receive Date: 20190204
  Receipt Date: 20190204
  Transmission Date: 20190417
  Serious: Yes (Other)
  Sender: FDA-Public Use
  Company Number: GB-GLAXOSMITHKLINE-GB2019GSK014754

PATIENT
  Sex: Female

DRUGS (1)
  1. ZYBAN [Suspect]
     Active Substance: BUPROPION HYDROCHLORIDE
     Indication: EX-TOBACCO USER
     Dosage: UNK
     Dates: start: 1998

REACTIONS (6)
  - Hypertension [Unknown]
  - Heart rate irregular [Unknown]
  - Palpitations [Unknown]
  - Anxiety [Unknown]
  - Oesophageal spasm [Unknown]
  - Atrial fibrillation [Unknown]
